FAERS Safety Report 9003119 (Version 3)
Quarter: 2013Q1

REPORT INFORMATION
  Report Type: Spontaneous
  Country: US (occurrence: US)
  Receive Date: 20130108
  Receipt Date: 20130110
  Transmission Date: 20140127
  Serious: Yes (Death)
  Sender: FDA-Public Use
  Company Number: US-PFIZER INC-2013004304

PATIENT
  Age: 66 Year
  Sex: Female

DRUGS (3)
  1. ALPRAZOLAM [Suspect]
     Route: 048
  2. ZOLPIDEM TARTRATE [Suspect]
     Route: 048
  3. ACETAMINOPHEN W/HYDROCODONE BITARTRATE [Suspect]
     Route: 048

REACTIONS (1)
  - Completed suicide [Fatal]
